FAERS Safety Report 21948850 (Version 1)
Quarter: 2023Q1

REPORT INFORMATION
  Report Type: Spontaneous
  Country: US (occurrence: None)
  Receive Date: 20230202
  Receipt Date: 20230202
  Transmission Date: 20230418
  Serious: No
  Sender: FDA-Public Use
  Company Number: None

PATIENT
  Sex: Male

DRUGS (2)
  1. ENBREL [Suspect]
     Active Substance: ETANERCEPT
     Indication: Arthropathy
     Dosage: FREQUENCY : WEEKLY;?
     Route: 058
     Dates: start: 201502
  2. ENBREL [Suspect]
     Active Substance: ETANERCEPT
     Indication: Ankylosing spondylitis

REACTIONS (3)
  - Device malfunction [None]
  - Device leakage [None]
  - Drug dose omission by device [None]

NARRATIVE: CASE EVENT DATE: 20230202
